FAERS Safety Report 4869660-5 (Version None)
Quarter: 2005Q4

REPORT INFORMATION
  Report Type: 
  Country: None (occurrence: None)
  Receive Date: 20051223
  Receipt Date: 20051213
  Transmission Date: 20060501
  Serious: Yes (Hospitalization, Other)
  Sender: FDA-Public Use
  Company Number: HQWYE026115DEC05

PATIENT
  Age: 62 Year
  Sex: Male

DRUGS (5)
  1. TAZONAM (PIPERACILLIN/TAZOBACTAM, INJECTION) [Suspect]
     Indication: PNEUMONIA
     Dosage: 4.5 G 4X PER 1 DAY
     Route: 042
     Dates: start: 20040423, end: 20040429
  2. BIKLIN (AMIKACIN SULFATE) [Concomitant]
  3. PANTOLOC ^BYK MADAUS^ (PANTOPRAZOLE) [Concomitant]
  4. DIPRIVAN [Concomitant]
  5. SUFENTANIL (SUFENTANIL) [Concomitant]

REACTIONS (1)
  - PSEUDOMONAS INFECTION [None]
